FAERS Safety Report 18716408 (Version 2)
Quarter: 2021Q1

REPORT INFORMATION
  Report Type: Spontaneous
  Country: US (occurrence: US)
  Receive Date: 20210108
  Receipt Date: 20210113
  Transmission Date: 20210419
  Serious: Yes (Life-Threatening, Hospitalization, Other)
  Sender: FDA-Public Use
  Company Number: US-STRIDES ARCOLAB LIMITED-2021SP000327

PATIENT
  Age: 58 Year
  Sex: Male

DRUGS (1)
  1. IBUPROFEN. [Suspect]
     Active Substance: IBUPROFEN
     Indication: PAIN
     Dosage: 60 PILLS DAILY OF 200MG FOR 10 DAYS (UP?TO 12 G/DAY), TABLET
     Route: 065

REACTIONS (6)
  - Metabolic acidosis [Recovered/Resolved]
  - Electrocardiogram QRS complex prolonged [Unknown]
  - Hypokalaemia [Recovered/Resolved]
  - Intentional overdose [Recovered/Resolved]
  - Renal tubular acidosis [Recovered/Resolved]
  - Toxicity to various agents [Unknown]
